FAERS Safety Report 21258438 (Version 2)
Quarter: 2022Q3

REPORT INFORMATION
  Report Type: Report from Study
  Country: US (occurrence: US)
  Receive Date: 20220826
  Receipt Date: 20220829
  Transmission Date: 20221027
  Serious: Yes (Other)
  Sender: FDA-Public Use
  Company Number: US-ASTELLAS-2022US030134

PATIENT
  Age: 73 Year
  Sex: Female

DRUGS (1)
  1. MIRABEGRON [Suspect]
     Active Substance: MIRABEGRON
     Indication: Product used for unknown indication
     Dosage: 50 MG, ONCE DAILY (STRENGTH: 50 MG) (ROUGHLY FOR 3 WEEKS)
     Route: 048
     Dates: start: 202207, end: 20220721

REACTIONS (3)
  - Fall [Unknown]
  - Hip fracture [Unknown]
  - Nightmare [Unknown]

NARRATIVE: CASE EVENT DATE: 20220701
